FAERS Safety Report 8461625-X (Version None)
Quarter: 2012Q2

REPORT INFORMATION
  Report Type: 
  Country: None (occurrence: None)
  Receive Date: 20120625
  Receipt Date: 20120615
  Transmission Date: 20120825
  Serious: Yes (Other)
  Sender: FDA-Public Use
  Company Number: PHHY2012FR016010

PATIENT
  Age: 41 Year
  Sex: Female

DRUGS (3)
  1. IBUPROFEN (ADVIL) [Concomitant]
  2. EXTAVIA [Suspect]
     Indication: MULTIPLE SCLEROSIS
     Dosage: 1 ML, EVERY 4 DAYS
  3. ACETAMINOPHEN [Concomitant]

REACTIONS (7)
  - GAIT DISTURBANCE [None]
  - NAUSEA [None]
  - LIMB DISCOMFORT [None]
  - PAIN IN EXTREMITY [None]
  - BACK PAIN [None]
  - ANGINA PECTORIS [None]
  - NECK PAIN [None]
